FAERS Safety Report 21726836 (Version 1)
Quarter: 2022Q4

REPORT INFORMATION
  Report Type: Spontaneous
  Country: US (occurrence: None)
  Receive Date: 20221214
  Receipt Date: 20221214
  Transmission Date: 20230112
  Serious: No
  Sender: FDA-Public Use
  Company Number: 2022A404934

PATIENT
  Age: 55 Year
  Sex: Female

DRUGS (3)
  1. OMEPRAZOLE [Suspect]
     Active Substance: OMEPRAZOLE
     Route: 048
  2. XALKORI [Suspect]
     Active Substance: CRIZOTINIB
     Route: 065
  3. PEPCID [Concomitant]
     Active Substance: FAMOTIDINE
     Route: 065

REACTIONS (5)
  - Dyspepsia [Unknown]
  - Fatigue [Unknown]
  - Pain [Unknown]
  - Oesophageal discomfort [Unknown]
  - Sleep disorder [Unknown]
